FAERS Safety Report 5673084-0 (Version None)
Quarter: 2008Q1

REPORT INFORMATION
  Report Type: 
  Country: None (occurrence: None)
  Receive Date: 20080319
  Receipt Date: 20080213
  Transmission Date: 20080703
  Serious: No
  Sender: FDA-Public Use
  Company Number: US-ASTRAZENECA-2008UW03045

PATIENT
  Age: 67 Year
  Sex: Male
  Weight: 108.9 kg

DRUGS (11)
  1. SYMBICORT [Suspect]
     Indication: ASTHMA
     Route: 055
  2. XOPENEX [Concomitant]
  3. ASMANEX TWISTHALER [Concomitant]
  4. LEVOTHYROXINE SODIUM [Concomitant]
  5. METFORMIN HCL [Concomitant]
  6. CELEXA [Concomitant]
  7. ASPIRIN [Concomitant]
  8. ISOSORBIDE DINITRATE [Concomitant]
  9. NIFEDIPINE [Concomitant]
  10. VERA [Concomitant]
  11. PREDNISONE [Concomitant]

REACTIONS (3)
  - EYE SWELLING [None]
  - STOMATITIS [None]
  - URTICARIA [None]
